FAERS Safety Report 5292879-9 (Version None)
Quarter: 2007Q2

REPORT INFORMATION
  Report Type: 
  Country: None (occurrence: None)
  Receive Date: 20070411
  Receipt Date: 20070409
  Transmission Date: 20071010
  Serious: Yes (Hospitalization)
  Sender: FDA-Public Use
  Company Number: US-RB-005815-07

PATIENT
  Sex: Female

DRUGS (1)
  1. SUBOXONE [Suspect]
     Route: 060
     Dates: start: 20061003

REACTIONS (1)
  - SKIN INFECTION [None]
